FAERS Safety Report 4777298-3 (Version None)
Quarter: 2005Q3

REPORT INFORMATION
  Report Type: 
  Country: None (occurrence: None)
  Receive Date: 20050923
  Receipt Date: 20050615
  Transmission Date: 20060218
  Serious: Yes (Hospitalization)
  Sender: FDA-Public Use
  Company Number: PHEH2005US08177

PATIENT
  Age: 76 Year
  Sex: Female
  Weight: 61 kg

DRUGS (16)
  1. HYDROCORTISONE [Concomitant]
  2. TAGAMET [Concomitant]
  3. BENADRYL [Concomitant]
  4. TYLENOL (CAPLET) [Concomitant]
  5. VITAMIN B-12 [Concomitant]
     Dosage: 1 MG, QMO
     Route: 030
  6. MICARDIS [Concomitant]
     Dosage: 10 MG, QD
  7. CALCITONIN [Concomitant]
     Dosage: UNK, QD
     Route: 045
  8. DIDRONEL [Concomitant]
     Dosage: QAMX14DEVERY 3MOS
  9. PROTONIX [Concomitant]
     Dosage: 40 MG, PRN
     Route: 048
  10. AMOXICILLIN [Concomitant]
     Indication: PROPHYLAXIS
     Dosage: UNK, PRN
     Route: 048
  11. HYDROCHLOROTHIAZIDE [Concomitant]
     Dosage: 6.25 TO 12.5 MG QD PRN
  12. COLCHICINE [Concomitant]
     Indication: GOUT
     Dosage: 0.3 MG, PRN
  13. ALLOPURINOL [Concomitant]
     Dosage: 200 MG, QD
     Route: 048
  14. SANDOSTATIN LAR [Suspect]
     Indication: CARCINOID SYNDROME
     Dosage: 20 MG, QMO
  15. SANDOSTATIN LAR [Suspect]
     Dosage: 15 MG, QMO
     Route: 030
     Dates: start: 20050401, end: 20050601
  16. SANDOSTATIN LAR [Suspect]
     Dosage: 20 MG, UNK
     Dates: start: 20050701

REACTIONS (20)
  - ANXIETY [None]
  - ARTHRALGIA [None]
  - ASTHENIA [None]
  - BACK PAIN [None]
  - BONE PAIN [None]
  - CHILLS [None]
  - CRYING [None]
  - DIZZINESS [None]
  - DYSPNOEA [None]
  - EAR PAIN [None]
  - FATIGUE [None]
  - HEADACHE [None]
  - INJECTION SITE PAIN [None]
  - MUSCLE TWITCHING [None]
  - MYALGIA [None]
  - NEUROPATHIC PAIN [None]
  - PAIN [None]
  - SHOULDER PAIN [None]
  - TOOTHACHE [None]
  - TREMOR [None]
